FAERS Safety Report 4946913-3 (Version None)
Quarter: 2006Q1

REPORT INFORMATION
  Report Type: 
  Country: None (occurrence: None)
  Receive Date: 20060317
  Receipt Date: 20060309
  Transmission Date: 20060701
  Serious: Yes (Hospitalization)
  Sender: FDA-Public Use
  Company Number: US-JNJFOC-20060303342

PATIENT
  Sex: Female
  Weight: 90.72 kg

DRUGS (17)
  1. DURAGESIC-100 [Suspect]
     Dosage: THREE 100 UG/HR PATCHES
     Route: 062
  2. DURAGESIC-100 [Suspect]
     Route: 062
  3. PREDNISONE [Concomitant]
     Dosage: 8 MG DOSE (ONE 5 MG PLUS THREE 1 MG TABLETS IN 24 HOURS), SINCE 1983
     Route: 048
  4. COREG [Concomitant]
     Route: 048
  5. SINGULAIR [Concomitant]
     Indication: ASTHMA
     Route: 048
  6. PRILOSEC [Concomitant]
     Dosage: 20 MG IN THE A.M.
     Route: 048
  7. PROZAC [Concomitant]
     Indication: DEPRESSION
     Route: 048
  8. DANTRIUM [Concomitant]
     Route: 048
  9. TOPROL [Concomitant]
     Route: 048
  10. LORATADINE [Concomitant]
     Indication: ASTHMA
     Route: 048
  11. DILTIAZEM [Concomitant]
     Route: 048
  12. PERCOCET [Concomitant]
     Route: 048
  13. PERCOCET [Concomitant]
     Indication: BREAKTHROUGH PAIN
     Dosage: 5 MG/ 325 MG, TWO IN ONE DAY, SINCE 2002
     Route: 048
  14. ADVAIR DISKUS 100/50 [Concomitant]
     Route: 048
  15. ADVAIR DISKUS 100/50 [Concomitant]
     Indication: ASTHMA
     Dosage: 100 MG/50 MG ONCE DAILY, SINCE 2002
     Route: 048
  16. COMBIVENT [Concomitant]
     Route: 048
  17. COMBIVENT [Concomitant]
     Indication: ASTHMA
     Dosage: 2 PUFFS, TWO IN ONE DAY, SINCE 2002
     Route: 048

REACTIONS (2)
  - DIABETES MELLITUS [None]
  - PNEUMONIA [None]
